FAERS Safety Report 9095664 (Version 2)
Quarter: 2013Q2

REPORT INFORMATION
  Report Type: Spontaneous
  Country: US (occurrence: US)
  Receive Date: 20130219
  Receipt Date: 20130423
  Transmission Date: 20140414
  Serious: No
  Sender: FDA-Public Use
  Company Number: US-009507513-2011SP015843

PATIENT
  Sex: Female

DRUGS (1)
  1. IMPLANON [Suspect]
     Dosage: 1 IMPLANT
     Route: 059
     Dates: start: 20110221

REACTIONS (2)
  - Application site erythema [Unknown]
  - Application site rash [Unknown]
